FAERS Safety Report 23036679 (Version 7)
Quarter: 2024Q3

REPORT INFORMATION
  Report Type: Report from Study
  Country: RO (occurrence: RO)
  Receive Date: 20231006
  Receipt Date: 20240925
  Transmission Date: 20241016
  Serious: Yes (Hospitalization, Disabling, Other)
  Sender: NOVARTIS
  Company Number: RO-002147023-NVSC2023RO206283

PATIENT
  Age: 69 Year
  Sex: Female

DRUGS (8)
  1. ELTROMBOPAG OLAMINE [Suspect]
     Active Substance: ELTROMBOPAG OLAMINE
     Indication: Thrombocytopenia
     Dosage: 50 MG, QD
     Route: 048
     Dates: start: 202104
  2. ELTROMBOPAG OLAMINE [Suspect]
     Active Substance: ELTROMBOPAG OLAMINE
     Dosage: 25 AND 50 MG, QD (PILL)
     Route: 048
     Dates: end: 20230905
  3. ELTROMBOPAG OLAMINE [Suspect]
     Active Substance: ELTROMBOPAG OLAMINE
     Dosage: 50 MG, QD
     Route: 048
     Dates: start: 202310, end: 202311
  4. PREDNISONE [Concomitant]
     Active Substance: PREDNISONE
     Indication: Thrombocytopenia
     Dosage: 3.15 MG
     Route: 065
  5. PREDNISONE [Concomitant]
     Active Substance: PREDNISONE
     Dosage: 8 MG
     Route: 065
     Dates: start: 202309, end: 202309
  6. PRAMIPEXOLE DIHYDROCHLORIDE [Concomitant]
     Active Substance: PRAMIPEXOLE DIHYDROCHLORIDE
     Indication: Parkinson^s disease
     Dosage: 3.15 MG, QD
     Route: 065
  7. SELEGOS [Concomitant]
     Indication: Parkinson^s disease
     Dosage: 20 DOSAGE FORM, QD
     Route: 065
  8. CARBIDOPA\LEVODOPA [Concomitant]
     Active Substance: CARBIDOPA\LEVODOPA
     Indication: Parkinson^s disease
     Dosage: UNK, QID (HALF TABLET)
     Route: 065

REACTIONS (15)
  - Decreased immune responsiveness [Recovered/Resolved]
  - Nasopharyngitis [Recovered/Resolved]
  - Epistaxis [Recovered/Resolved]
  - Mobility decreased [Unknown]
  - Choking [Recovered/Resolved]
  - Nasal congestion [Recovered/Resolved]
  - Post procedural discharge [Recovered/Resolved]
  - Platelet count decreased [Recovering/Resolving]
  - Contusion [Recovered/Resolved]
  - Product availability issue [Not Recovered/Not Resolved]
  - Malaise [Recovered/Resolved]
  - Pigmentation disorder [Recovered/Resolved]
  - Contusion [Recovered/Resolved]
  - Epistaxis [Recovered/Resolved]
  - Feeling abnormal [Not Recovered/Not Resolved]

NARRATIVE: CASE EVENT DATE: 20230901
